FAERS Safety Report 16564441 (Version 2)
Quarter: 2019Q3

REPORT INFORMATION
  Report Type: Spontaneous
  Country: DE (occurrence: DE)
  Receive Date: 20190712
  Receipt Date: 20190719
  Transmission Date: 20191004
  Serious: Yes (Hospitalization, Other)
  Sender: FDA-Public Use
  Company Number: DE-JNJFOC-20190713412

PATIENT
  Age: 28 Year
  Sex: Female

DRUGS (2)
  1. IBUPROFEN. [Suspect]
     Active Substance: IBUPROFEN
     Indication: PRODUCT USED FOR UNKNOWN INDICATION
     Dosage: 400 MG, ABGESETZT
     Route: 065
  2. IBU LYSIN HEXAL [Suspect]
     Active Substance: IBUPROFEN LYSINE
     Indication: PRODUCT USED FOR UNKNOWN INDICATION
     Dosage: IBU-LYSIN HEXAL 684 MG: 400 MG, 2 X 2
     Route: 065

REACTIONS (4)
  - Nausea [Unknown]
  - Headache [Unknown]
  - Syncope [Unknown]
  - Dizziness [Unknown]
